FAERS Safety Report 5747879-9 (Version None)
Quarter: 2008Q2

REPORT INFORMATION
  Report Type: 
  Country: None (occurrence: None)
  Receive Date: 20080523
  Receipt Date: 20080516
  Transmission Date: 20081010
  Serious: Yes (Death, Hospitalization)
  Sender: FDA-Public Use
  Company Number: US-BAYER-200817051NA

PATIENT
  Age: 64 Year
  Sex: Male

DRUGS (16)
  1. SORAFENIB [Suspect]
     Indication: METASTATIC SQUAMOUS CELL CARCINOMA
     Dosage: TOTAL DAILY DOSE: 800 MG  UNIT DOSE: 200 MG
     Route: 048
     Dates: start: 20080311, end: 20080312
  2. SORAFENIB [Suspect]
     Dosage: TOTAL DAILY DOSE: 800 MG  UNIT DOSE: 200 MG
     Route: 048
     Dates: start: 20080220, end: 20080308
  3. CARBOPLATIN [Suspect]
     Indication: METASTATIC SQUAMOUS CELL CARCINOMA
     Dates: start: 20080219, end: 20080219
  4. PACLITAXEL [Suspect]
     Indication: METASTATIC SQUAMOUS CELL CARCINOMA
     Route: 042
     Dates: start: 20080219, end: 20080219
  5. DURAGESIC-100 [Concomitant]
     Indication: PAIN
  6. ACETAMINOPHEN AND HYDROCODONE BITARTRATE [Concomitant]
  7. MOM [Concomitant]
  8. LISINOPRIL [Concomitant]
     Dosage: TOTAL DAILY DOSE: 10 MG
     Route: 048
  9. BECONASE [Concomitant]
  10. LEVAQUIN [Concomitant]
     Dosage: TOTAL DAILY DOSE: 250 MG
     Route: 048
  11. CENTRUM SILVER [Concomitant]
     Dosage: TOTAL DAILY DOSE: 1 DF
  12. NUMOISYN [Concomitant]
  13. PROTONIX [Concomitant]
     Dosage: TOTAL DAILY DOSE: 40 MG
  14. DITROPAN [Concomitant]
     Dosage: TOTAL DAILY DOSE: 10 MG
     Route: 048
  15. COREG [Concomitant]
     Dosage: TOTAL DAILY DOSE: 25 MG
  16. DEXAMETHASONE TAB [Concomitant]
     Dosage: TOTAL DAILY DOSE: 12 MG
     Dates: start: 20080311

REACTIONS (2)
  - COMA [None]
  - HAEMORRHAGE INTRACRANIAL [None]
